FAERS Safety Report 11627518 (Version 2)
Quarter: 2015Q4

REPORT INFORMATION
  Report Type: Spontaneous
  Country: US (occurrence: US)
  Receive Date: 20151014
  Receipt Date: 20151102
  Transmission Date: 20160304
  Serious: Yes (Hospitalization)
  Sender: FDA-Public Use
  Company Number: US-009507513-1510USA004379

PATIENT
  Age: 40 Year

DRUGS (4)
  1. ISENTRESS [Suspect]
     Active Substance: RALTEGRAVIR POTASSIUM
     Dosage: 400 MG, BID
     Route: 048
     Dates: start: 201310
  2. RITONAVIR. [Concomitant]
     Active Substance: RITONAVIR
     Dosage: UNK
     Dates: end: 20151007
  3. DARUNAVIR [Concomitant]
     Active Substance: DARUNAVIR
  4. COMBIVIR [Concomitant]
     Active Substance: LAMIVUDINE\ZIDOVUDINE

REACTIONS (4)
  - Brain neoplasm [Unknown]
  - Confusional state [Unknown]
  - Mental status changes [Unknown]
  - Myoclonus [Unknown]

NARRATIVE: CASE EVENT DATE: 2015
